FAERS Safety Report 6906327-3 (Version None)
Quarter: 2010Q3

REPORT INFORMATION
  Report Type: 
  Country: None (occurrence: None)
  Receive Date: 20100708
  Receipt Date: 20090428
  Transmission Date: 20110219
  Serious: Yes (Other)
  Sender: FDA-Public Use
  Company Number: 2009180585

PATIENT
  Age: 33 Year
  Sex: Female
  Weight: 118.8 kg

DRUGS (2)
  1. CHANTIX [Suspect]
     Dosage: 1 MG, 2X/DAY, ORAL
     Route: 048
     Dates: start: 20090219, end: 20090228
  2. XANAX [Concomitant]

REACTIONS (4)
  - ABNORMAL DREAMS [None]
  - ANGER [None]
  - ANXIETY [None]
  - MALAISE [None]
